FAERS Safety Report 4322468-1 (Version None)
Quarter: 2004Q1

REPORT INFORMATION
  Report Type: 
  Country: None (occurrence: None)
  Receive Date: 20040323
  Receipt Date: 20040323
  Transmission Date: 20041129
  Serious: Yes (Life-Threatening)
  Sender: FDA-Public Use
  Company Number: None

PATIENT
  Age: 32 Year
  Sex: Female
  Weight: 127.0072 kg

DRUGS (3)
  1. LEXAPRO [Suspect]
     Indication: ANXIETY
     Dosage: 10 MG DAILY ORAL
     Route: 048
     Dates: start: 20030125, end: 20040301
  2. LEXAPRO [Suspect]
     Indication: DEPRESSION
     Dosage: 10 MG DAILY ORAL
     Route: 048
     Dates: start: 20030125, end: 20040301
  3. LEXAPRO [Suspect]
     Indication: IRRITABLE BOWEL SYNDROME
     Dosage: 10 MG DAILY ORAL
     Route: 048
     Dates: start: 20030125, end: 20040301

REACTIONS (11)
  - ABNORMAL DREAMS [None]
  - DECREASED APPETITE [None]
  - DIZZINESS [None]
  - DRUG INEFFECTIVE [None]
  - FEELING ABNORMAL [None]
  - INDIFFERENCE [None]
  - INSOMNIA [None]
  - MARITAL PROBLEM [None]
  - SUICIDAL IDEATION [None]
  - THINKING ABNORMAL [None]
  - WEIGHT INCREASED [None]
